FAERS Safety Report 17524093 (Version 1)
Quarter: 2020Q1

REPORT INFORMATION
  Report Type: Spontaneous
  Country: US (occurrence: US)
  Receive Date: 20200302
  Receipt Date: 20200302
  Transmission Date: 20200409
  Serious: Yes (Hospitalization)
  Sender: FDA-Public Use
  Company Number: None

PATIENT
  Age: 91 Year
  Sex: Female

DRUGS (3)
  1. DIGOXIN. [Concomitant]
     Active Substance: DIGOXIN
  2. SILDENAFIL 20MG TAB [Suspect]
     Active Substance: SILDENAFIL
     Indication: PULMONARY ARTERIAL HYPERTENSION
     Route: 048
     Dates: start: 20190806
  3. DULOXETINE. [Concomitant]
     Active Substance: DULOXETINE

REACTIONS (3)
  - Fall [None]
  - Balance disorder [None]
  - Femur fracture [None]

NARRATIVE: CASE EVENT DATE: 201912
